FAERS Safety Report 5254822-8 (Version None)
Quarter: 2007Q1

REPORT INFORMATION
  Report Type: 
  Country: None (occurrence: None)
  Receive Date: 20070302
  Receipt Date: 20070302
  Transmission Date: 20070707
  Serious: No
  Sender: FDA-Public Use
  Company Number: None

PATIENT
  Age: 45 Year
  Sex: Male

DRUGS (2)
  1. PROMETHAZINE HCL [Suspect]
     Indication: NAUSEA
     Dosage: 25MG X1 IV BOLUS
     Route: 040
     Dates: start: 20070112, end: 20070112
  2. PROMETHAZINE HCL [Suspect]
     Indication: VOMITING
     Dosage: 25MG X1 IV BOLUS
     Route: 040
     Dates: start: 20070112, end: 20070112

REACTIONS (1)
  - INFUSION SITE PAIN [None]
